FAERS Safety Report 7707176-9 (Version None)
Quarter: 2011Q3

REPORT INFORMATION
  Report Type: 
  Country: None (occurrence: None)
  Receive Date: 20110824
  Receipt Date: 20110817
  Transmission Date: 20111222
  Serious: Yes (Death, Hospitalization, Other)
  Sender: FDA-Public Use
  Company Number: US-BAYER-200939875NA

PATIENT
  Age: 73 Year
  Sex: Female
  Weight: 59.864 kg

DRUGS (8)
  1. TRASYLOL [Suspect]
     Indication: PRODUCT USED FOR UNKNOWN INDICATION
     Route: 042
     Dates: start: 19970101
  2. DIGOXIN [Concomitant]
  3. COUMADIN [Concomitant]
  4. OPTIRAY 300 [Concomitant]
     Dosage: 115 ML, UNK
  5. LASIX [Concomitant]
  6. NORVASC [Concomitant]
  7. ACETYLSALICYLIC ACID SRT [Concomitant]
  8. POTASSIUM [Concomitant]

REACTIONS (13)
  - RENAL FAILURE [None]
  - FEAR [None]
  - EMOTIONAL DISTRESS [None]
  - STRESS [None]
  - ANXIETY [None]
  - MULTI-ORGAN FAILURE [None]
  - RENAL IMPAIRMENT [None]
  - UNEVALUABLE EVENT [None]
  - PAIN [None]
  - INJURY [None]
  - RENAL INJURY [None]
  - DEATH [None]
  - ANHEDONIA [None]
